FAERS Safety Report 5429048-5 (Version None)
Quarter: 2007Q3

REPORT INFORMATION
  Report Type: 
  Country: None (occurrence: None)
  Receive Date: 20070829
  Receipt Date: 20070301
  Transmission Date: 20080115
  Serious: No
  Sender: FDA-Public Use
  Company Number: A0641508A

PATIENT
  Age: 69 Year
  Sex: Female

DRUGS (4)
  1. MALARONE [Suspect]
     Indication: MALARIA
     Dosage: 1TAB PER DAY
     Route: 048
     Dates: start: 20060901, end: 20060901
  2. LEVOXYL [Concomitant]
  3. ADVAIR DISKUS 100/50 [Concomitant]
  4. PEPTOBISMOL [Concomitant]

REACTIONS (2)
  - PRURITUS [None]
  - RASH [None]
